FAERS Safety Report 21554424 (Version 1)
Quarter: 2022Q4

REPORT INFORMATION
  Report Type: Spontaneous
  Country: US (occurrence: US)
  Receive Date: 20221104
  Receipt Date: 20221104
  Transmission Date: 20230113
  Serious: Yes (Other)
  Sender: FDA-Public Use
  Company Number: US-MLMSERVICE-20221018-3866230-1

PATIENT
  Age: 74 Year
  Sex: Male

DRUGS (1)
  1. METHOTREXATE [Suspect]
     Active Substance: METHOTREXATE
     Indication: Product used for unknown indication
     Dosage: 10 MG METHOTREXATE (MTX) THREE TIMES PER DAY FOR 2 WEEKS

REACTIONS (12)
  - Oropharyngeal oedema [Recovering/Resolving]
  - Alanine aminotransferase abnormal [Recovering/Resolving]
  - Aspartate aminotransferase abnormal [Recovering/Resolving]
  - Platelet count abnormal [Recovering/Resolving]
  - White blood cell count abnormal [Recovering/Resolving]
  - Hallucination [Recovering/Resolving]
  - Confusional state [Recovering/Resolving]
  - Stomatitis [Recovering/Resolving]
  - Inappropriate schedule of product administration [Unknown]
  - Toxicity to various agents [Unknown]
  - Pyrexia [Recovering/Resolving]
  - Blood creatinine abnormal [Recovering/Resolving]
